FAERS Safety Report 4585742-X (Version None)
Quarter: 2005Q1

REPORT INFORMATION
  Report Type: 
  Country: None (occurrence: None)
  Receive Date: 20050214
  Receipt Date: 20041018
  Transmission Date: 20050727
  Serious: Yes (Death, Life-Threatening, Hospitalization)
  Sender: FDA-Public Use
  Company Number: 05-098

PATIENT
  Age: 67 Year
  Sex: Female

DRUGS (10)
  1. DEXAMETHASONE [Suspect]
     Indication: MULTIPLE MYELOMA
     Dosage: 7 MG/KG/DAY, INTRAVENOUS
     Route: 042
     Dates: start: 20020922, end: 20030730
  2. GENASENSE [Suspect]
     Indication: MULTIPLE MYELOMA
     Dosage: 40 MG/DAY, ORAL
     Route: 048
     Dates: start: 20020922, end: 20030730
  3. ACETAMINOPHEN [Concomitant]
  4. DOCUSATE [Concomitant]
  5. HYDROMORPHINE [Concomitant]
  6. LORAZEPAM [Concomitant]
  7. METOPROLOL TARTRATE [Concomitant]
  8. PAROXETINE [Concomitant]
  9. SALMETEROL SINAFOATE/FLUTICASONE PROPIONATE [Concomitant]
  10. SENNA EXTRACT [Concomitant]

REACTIONS (9)
  - ACUTE MYOCARDIAL INFARCTION [None]
  - ANOXIC ENCEPHALOPATHY [None]
  - CARDIAC ARREST [None]
  - HYPOTENSION [None]
  - LOBAR PNEUMONIA [None]
  - LUNG DISORDER [None]
  - PNEUMOTHORAX [None]
  - RESPIRATORY DISTRESS [None]
  - SUPRAVENTRICULAR TACHYCARDIA [None]
